FAERS Safety Report 5273861-4 (Version None)
Quarter: 2007Q1

REPORT INFORMATION
  Report Type: 
  Country: None (occurrence: None)
  Receive Date: 20070323
  Receipt Date: 20070312
  Transmission Date: 20070707
  Serious: Yes (Other)
  Sender: FDA-Public Use
  Company Number: CA-ROCHE-487083

PATIENT
  Age: 28 Year
  Sex: Female

DRUGS (9)
  1. PEGASYS [Suspect]
     Indication: DRUG USE FOR UNKNOWN INDICATION
     Route: 065
  2. RIBAVIRIN [Suspect]
     Indication: DRUG USE FOR UNKNOWN INDICATION
     Route: 065
  3. SALBUTAMOL [Concomitant]
     Dosage: DRUG REPORTED AS RATIO SALBUTAMOL HFA.
     Route: 055
  4. DOXEPIN HYDROCHLORIDE [Concomitant]
  5. METHADONE HCL [Concomitant]
     Route: 048
  6. OFLOXACIN [Concomitant]
  7. CLONAZEPAM [Concomitant]
  8. HYDROMORPHONE HCL [Concomitant]
  9. DIHYDROERGOTAMINE MESYLATE [Concomitant]

REACTIONS (1)
  - CONVULSION [None]
